FAERS Safety Report 6373108-1 (Version None)
Quarter: 2009Q3

REPORT INFORMATION
  Report Type: 
  Country: None (occurrence: None)
  Receive Date: 20090924
  Receipt Date: 20090611
  Transmission Date: 20100115
  Serious: Yes (Other)
  Sender: FDA-Public Use
  Company Number: US-ASTRAZENECA-2009UW03094

PATIENT
  Sex: Female
  Weight: 64.4 kg

DRUGS (2)
  1. SEROQUEL [Suspect]
     Indication: ANXIETY
     Dosage: 25 TO 300 MG
     Route: 048
     Dates: start: 19990101, end: 20071201
  2. OTHER PSYCHIATRIC MEDICATION [Concomitant]

REACTIONS (1)
  - PANCREATITIS [None]
